FAERS Safety Report 19213550 (Version 2)
Quarter: 2021Q2

REPORT INFORMATION
  Report Type: Spontaneous
  Country: FR (occurrence: FR)
  Receive Date: 20210504
  Receipt Date: 20210512
  Transmission Date: 20210717
  Serious: Yes (Other)
  Sender: FDA-Public Use
  Company Number: FR-SA-2021SA144142

PATIENT
  Age: 68 Year
  Sex: Male

DRUGS (1)
  1. TOUJEO [Suspect]
     Active Substance: INSULIN GLARGINE
     Dosage: UNK

REACTIONS (7)
  - Hyperglycaemia [Unknown]
  - Respiratory failure [Unknown]
  - Bronchitis chronic [Unknown]
  - HIV infection [Unknown]
  - Injection site abscess [Unknown]
  - Drug ineffective [Unknown]
  - Neoplasm malignant [Unknown]
